FAERS Safety Report 9770988 (Version 2)
Quarter: 2013Q4

REPORT INFORMATION
  Report Type: Spontaneous
  Country: US (occurrence: US)
  Receive Date: 20131218
  Receipt Date: 20131218
  Transmission Date: 20140711
  Serious: No
  Sender: FDA-Public Use
  Company Number: US-MYLANLABS-2013S1017675

PATIENT
  Age: 48 Year
  Sex: Female
  Weight: 65 kg

DRUGS (4)
  1. ROCURONIUM BROMIDE INJECTION [Suspect]
     Indication: GENERAL ANAESTHESIA
     Route: 042
     Dates: start: 20130711, end: 20130711
  2. VERSED [Concomitant]
     Route: 042
  3. FENTANYL [Concomitant]
     Route: 042
  4. PROPOFOL [Concomitant]
     Route: 042

REACTIONS (2)
  - Drug ineffective [Recovered/Resolved]
  - Anaesthetic complication [Recovered/Resolved]
